FAERS Safety Report 16548838 (Version 4)
Quarter: 2021Q2

REPORT INFORMATION
  Report Type: Spontaneous
  Country: US (occurrence: US)
  Receive Date: 20190709
  Receipt Date: 20210406
  Transmission Date: 20210716
  Serious: No
  Sender: FDA-Public Use
  Company Number: US-PFIZER INC-2019281418

PATIENT
  Age: 72 Year
  Sex: Female
  Weight: 76.2 kg

DRUGS (4)
  1. CLOBETASOL [Concomitant]
     Active Substance: CLOBETASOL
     Indication: DERMATITIS ATOPIC
     Dosage: UNK
     Dates: start: 20180920
  2. EUCRISA [Concomitant]
     Active Substance: CRISABOROLE
     Indication: DERMATITIS ATOPIC
     Dosage: UNK
     Dates: start: 20170313
  3. XELJANZ [Suspect]
     Active Substance: TOFACITINIB CITRATE
     Indication: DERMATITIS ATOPIC
     Dosage: 5 MG, 2X/DAY
     Route: 048
     Dates: start: 20190730
  4. HALOBETASOL [Concomitant]
     Active Substance: HALOBETASOL PROPIONATE
     Indication: DERMATITIS ATOPIC
     Dosage: UNK
     Dates: start: 20160113

REACTIONS (2)
  - Off label use [Unknown]
  - Drug ineffective for unapproved indication [Unknown]

NARRATIVE: CASE EVENT DATE: 20190730
